FAERS Safety Report 5766049-1 (Version None)
Quarter: 2008Q2

REPORT INFORMATION
  Report Type: 
  Country: None (occurrence: None)
  Receive Date: 20080611
  Receipt Date: 20080603
  Transmission Date: 20081010
  Serious: Yes (Hospitalization)
  Sender: FDA-Public Use
  Company Number: BR-AVENTIS-200815317GDDC

PATIENT
  Age: 72 Year
  Sex: Female

DRUGS (5)
  1. LANTUS [Suspect]
     Route: 058
     Dates: start: 20060101
  2. GLUCOFORMIN                        /00082701/ [Concomitant]
     Dosage: DOSE QUANTITY: 3
     Route: 048
  3. ATENOLOL [Concomitant]
     Indication: BLOOD PRESSURE
     Dosage: DOSE QUANTITY: 2
     Route: 048
     Dates: start: 20071101
  4. LOSARTAN POTASSIUM [Concomitant]
     Indication: BLOOD PRESSURE
     Dosage: DOSE QUANTITY: 2
     Route: 048
     Dates: start: 20071101
  5. AMLODIPINE [Concomitant]
     Indication: BLOOD PRESSURE
     Dosage: DOSE QUANTITY: 2
     Route: 048
     Dates: start: 20071101

REACTIONS (5)
  - BLOOD GLUCOSE INCREASED [None]
  - CONDITION AGGRAVATED [None]
  - HYPERTENSION [None]
  - PNEUMONIA [None]
  - URINARY TRACT INFECTION [None]
